FAERS Safety Report 6657973-6 (Version None)
Quarter: 2010Q1

REPORT INFORMATION
  Report Type: 
  Country: None (occurrence: None)
  Receive Date: 20100330
  Receipt Date: 20100323
  Transmission Date: 20100710
  Serious: Yes (Other)
  Sender: FDA-Public Use
  Company Number: US-ROCHE-693748

PATIENT
  Sex: Female
  Weight: 68.2 kg

DRUGS (1)
  1. ROCEPHIN [Suspect]
     Dosage: FREQUENCY: ONCE
     Route: 065
     Dates: start: 20100322

REACTIONS (1)
  - VISUAL IMPAIRMENT [None]
